FAERS Safety Report 7166900-7 (Version None)
Quarter: 2010Q4

REPORT INFORMATION
  Report Type: 
  Country: None (occurrence: None)
  Receive Date: 20101216
  Receipt Date: 20101206
  Transmission Date: 20110411
  Serious: Yes (Other)
  Sender: FDA-Public Use
  Company Number: US-JNJCH-2010028582

PATIENT
  Age: 68 Year
  Sex: Female
  Weight: 99.8 kg

DRUGS (1)
  1. LISTERINE TOTAL CARE ANTICAVITY MOUTHWASH [Suspect]
     Indication: DENTAL DISORDER PROPHYLAXIS
     Dosage: TEXT:95ML ONCE
     Route: 048
     Dates: start: 20101203, end: 20101203

REACTIONS (7)
  - CONDITION AGGRAVATED [None]
  - GASTRIC ULCER [None]
  - OEDEMA MOUTH [None]
  - ORAL PAIN [None]
  - OROPHARYNGEAL BLISTERING [None]
  - OVERDOSE [None]
  - SPEECH DISORDER [None]
